FAERS Safety Report 11576155 (Version 2)
Quarter: 2015Q4

REPORT INFORMATION
  Report Type: Spontaneous
  Country: BR (occurrence: BR)
  Receive Date: 20150930
  Receipt Date: 20151112
  Transmission Date: 20160304
  Serious: Yes (Other)
  Sender: FDA-Public Use
  Company Number: BR-SA-2015SA148261

PATIENT
  Age: 64 Year
  Sex: Female

DRUGS (1)
  1. LANTUS [Suspect]
     Active Substance: INSULIN GLARGINE
     Indication: METABOLIC DISORDER
     Dosage: TOOK 2 DOSES
     Route: 065

REACTIONS (7)
  - Sciatica [Recovering/Resolving]
  - Product use issue [Unknown]
  - Fall [Recovering/Resolving]
  - Balance disorder [Recovering/Resolving]
  - Drug administration error [Unknown]
  - Rib fracture [Recovering/Resolving]
  - Intervertebral disc injury [Recovering/Resolving]

NARRATIVE: CASE EVENT DATE: 2013
